FAERS Safety Report 8871501 (Version 1)
Quarter: 2012Q4

REPORT INFORMATION
  Report Type: 
  Country: FR (occurrence: FR)
  Receive Date: 20121029
  Receipt Date: 20121029
  Transmission Date: 20130627
  Serious: Yes (Hospitalization)
  Sender: FDA-Public Use
  Company Number: FR-ROCHE-1149180

PATIENT
  Age: 60 Year
  Sex: Male

DRUGS (7)
  1. VALIUM [Suspect]
     Indication: PRODUCT USED FOR UNKNOWN INDICATION
     Route: 048
  2. BACLOFEN [Suspect]
     Indication: ALCOHOLISM
     Route: 048
     Dates: start: 20120620
  3. BACLOFEN [Suspect]
     Dosage: dose increased
     Route: 048
     Dates: start: 20120710
  4. BACLOFEN [Suspect]
     Route: 048
     Dates: start: 20120719, end: 20120725
  5. ABILIFY [Suspect]
     Indication: BIPOLAR DISORDER
     Route: 065
     Dates: end: 20120725
  6. LAMICTAL [Suspect]
     Indication: PRODUCT USED FOR UNKNOWN INDICATION
     Route: 048
  7. NOCTAMIDE [Suspect]
     Indication: PRODUCT USED FOR UNKNOWN INDICATION
     Route: 048

REACTIONS (4)
  - Mania [Unknown]
  - Elevated mood [Unknown]
  - Compulsive shopping [Unknown]
  - Sleep disorder [Unknown]
